FAERS Safety Report 5277487-8 (Version None)
Quarter: 2007Q1

REPORT INFORMATION
  Report Type: 
  Country: None (occurrence: None)
  Receive Date: 20061213
  Receipt Date: 20040603
  Transmission Date: 20070707
  Serious: No
  Sender: FDA-Public Use
  Company Number: 2004UW11560

PATIENT
  Age: 42 Year
  Sex: Female
  Weight: 83.9154 kg

DRUGS (5)
  1. SEROQUEL [Suspect]
     Indication: MAJOR DEPRESSION
     Dosage: 200 MG QD PO
     Route: 048
  2. SEROQUEL [Suspect]
     Indication: MAJOR DEPRESSION
     Dosage: 400 MG QD PO
     Route: 048
     Dates: start: 19991201
  3. EFFEXOR [Concomitant]
  4. LORAZEPAM [Concomitant]
  5. CELEXA [Concomitant]

REACTIONS (1)
  - DIABETES MELLITUS [None]
